FAERS Safety Report 7226347-1 (Version None)
Quarter: 2011Q1

REPORT INFORMATION
  Report Type: 
  Country: None (occurrence: None)
  Receive Date: 20110114
  Receipt Date: 20110110
  Transmission Date: 20110831
  Serious: Yes (Death)
  Sender: FDA-Public Use
  Company Number: PHHY2011IT02181

PATIENT
  Sex: Female

DRUGS (2)
  1. COLCHICINE [Concomitant]
     Indication: BURSITIS
     Dosage: UNK
  2. GLEEVEC [Suspect]
     Indication: SCLERODERMA
     Dosage: UNK
     Dates: start: 20101218, end: 20101229

REACTIONS (7)
  - DYSPNOEA [None]
  - NAUSEA [None]
  - PAIN IN EXTREMITY [None]
  - WEIGHT DECREASED [None]
  - CARDIO-RESPIRATORY ARREST [None]
  - GENERAL PHYSICAL HEALTH DETERIORATION [None]
  - DIARRHOEA [None]
